FAERS Safety Report 9103203 (Version 2)
Quarter: 2013Q2

REPORT INFORMATION
  Report Type: Spontaneous
  Country: US (occurrence: US)
  Receive Date: 20130219
  Receipt Date: 20130626
  Transmission Date: 20140414
  Serious: Yes (Other)
  Sender: FDA-Public Use
  Company Number: US-PFIZER INC-2013061705

PATIENT
  Age: 49 Year
  Sex: Female
  Weight: 63.49 kg

DRUGS (2)
  1. DILANTIN [Suspect]
     Indication: CONVULSION
     Dosage: 3 CAPSULES OF 30 MG IN MORNING AND 2 CAPSULES OF 30 MG AT NIGHT
  2. DILANTIN [Suspect]
     Dosage: UNK

REACTIONS (3)
  - Drug ineffective [Unknown]
  - Product colour issue [Unknown]
  - Malaise [Unknown]
